FAERS Safety Report 23873127 (Version 1)
Quarter: 2024Q2

REPORT INFORMATION
  Report Type: Spontaneous
  Country: PL (occurrence: PL)
  Receive Date: 20240520
  Receipt Date: 20240520
  Transmission Date: 20240716
  Serious: Yes (Death, Life-Threatening, Hospitalization, Other)
  Sender: FDA-Public Use
  Company Number: PL-MLMSERVICE-20240502-PI047733-00218-2

PATIENT
  Age: 80 Year
  Sex: Female

DRUGS (1)
  1. METHOTREXATE [Suspect]
     Active Substance: METHOTREXATE
     Indication: Rheumatoid arthritis
     Dosage: PRESCRIBED DOSAGE WAS FIVE TABLETS ONCE A WEEK (12.5 MG OF MTX IN TOTAL)

REACTIONS (10)
  - Overdose [Fatal]
  - Haematemesis [Fatal]
  - Product dispensing error [Fatal]
  - Cardiopulmonary failure [Fatal]
  - Stomatitis [Fatal]
  - Toxicity to various agents [Fatal]
  - Urinary tract infection [Fatal]
  - Pancytopenia [Fatal]
  - Pneumonia [Fatal]
  - Upper gastrointestinal haemorrhage [Fatal]
